FAERS Safety Report 6391487-6 (Version None)
Quarter: 2009Q4

REPORT INFORMATION
  Report Type: 
  Country: None (occurrence: None)
  Receive Date: 20091006
  Receipt Date: 20091006
  Transmission Date: 20100525
  Serious: Yes (Death)
  Sender: FDA-Public Use
  Company Number: None

PATIENT
  Sex: Female
  Weight: 74 kg

DRUGS (2)
  1. CIPROFLOXACIN [Suspect]
     Indication: POST PROCEDURAL INFECTION
     Dosage: 400MG Q12H IV BOLUS
     Route: 040
     Dates: start: 20090728, end: 20090804
  2. VANCOMYCIN COMPOUNDED IV SOLUTION [Concomitant]

REACTIONS (1)
  - IDIOPATHIC THROMBOCYTOPENIC PURPURA [None]
